FAERS Safety Report 13158416 (Version 1)
Quarter: 2017Q1

REPORT INFORMATION
  Report Type: Spontaneous
  Country: US (occurrence: US)
  Receive Date: 20170127
  Receipt Date: 20170127
  Transmission Date: 20170428
  Serious: Yes (Hospitalization, Other)
  Sender: FDA-Public Use
  Company Number: US-ENDO PHARMACEUTICALS INC-2017-000261

PATIENT
  Sex: Male

DRUGS (5)
  1. METHOTREXATE. [Suspect]
     Active Substance: METHOTREXATE
     Indication: B PRECURSOR TYPE ACUTE LEUKAEMIA
     Dosage: UNK UNK, UNKNOWN
     Route: 065
  2. OXYCODONE HYDROCHLORIDE. [Concomitant]
     Active Substance: OXYCODONE HYDROCHLORIDE
     Indication: BACK PAIN
     Dosage: UNK, UNKNOWN
     Route: 065
     Dates: start: 2015
  3. VINCRISTINE SULFATE. [Suspect]
     Active Substance: VINCRISTINE SULFATE
     Indication: B PRECURSOR TYPE ACUTE LEUKAEMIA
     Dosage: UNK UNK, UNKNOWN
     Route: 065
  4. PREDNISONE TABLETS [Suspect]
     Active Substance: PREDNISONE
     Indication: B PRECURSOR TYPE ACUTE LEUKAEMIA
     Dosage: UNK, UNKNOWN
     Route: 065
     Dates: start: 20150930
  5. PEG/L-ASPARAGINASE [Suspect]
     Active Substance: PEGASPARGASE
     Indication: B PRECURSOR TYPE ACUTE LEUKAEMIA
     Dosage: UNK UNK, UNKNOWN
     Route: 065

REACTIONS (5)
  - Coagulopathy [Recovered/Resolved]
  - Meningitis bacterial [Recovered/Resolved]
  - Drug ineffective [Unknown]
  - Blood glucose increased [Unknown]
  - Hepatotoxicity [Recovering/Resolving]

NARRATIVE: CASE EVENT DATE: 2015
